FAERS Safety Report 11624399 (Version 1)
Quarter: 2015Q4

REPORT INFORMATION
  Report Type: Spontaneous
  Country: US (occurrence: None)
  Receive Date: 20151009
  Receipt Date: 20151009
  Transmission Date: 20160304
  Serious: Yes (Hospitalization)
  Sender: FDA-Public Use
  Company Number: None

PATIENT
  Age: 26 Year
  Sex: Male
  Weight: 99.1 kg

DRUGS (7)
  1. DILAUDID [Concomitant]
     Active Substance: HYDROMORPHONE HYDROCHLORIDE
  2. TRAZODONE [Concomitant]
     Active Substance: TRAZODONE HYDROCHLORIDE
  3. CARBOPLATIN. [Suspect]
     Active Substance: CARBOPLATIN
     Dates: end: 20150831
  4. TAXOL [Suspect]
     Active Substance: PACLITAXEL
     Dates: end: 20150921
  5. IBUPROFEN. [Concomitant]
     Active Substance: IBUPROFEN
  6. SERTRALINE [Concomitant]
     Active Substance: SERTRALINE HYDROCHLORIDE
  7. OMEPRAXOLE [Concomitant]

REACTIONS (7)
  - Dysphagia [None]
  - Radiation sickness syndrome [None]
  - Chest pain [None]
  - Fungal oesophagitis [None]
  - Oesophageal pain [None]
  - Odynophagia [None]
  - Haematemesis [None]

NARRATIVE: CASE EVENT DATE: 20150926
